FAERS Safety Report 9417810 (Version 7)
Quarter: 2013Q4

REPORT INFORMATION
  Report Type: Report from Study
  Country: GB (occurrence: GB)
  Receive Date: 20130724
  Receipt Date: 20131218
  Transmission Date: 20140711
  Serious: Yes (Life-Threatening, Hospitalization, Other)
  Sender: FDA-Public Use
  Company Number: GB-GLAXOSMITHKLINE-B0910445A

PATIENT
  Age: 71 Year
  Sex: Female

DRUGS (3)
  1. LAPATINIB [Suspect]
     Indication: ADENOCARCINOMA
     Dosage: 1250MG PER DAY
     Dates: start: 20121211, end: 20130219
  2. OXALIPLATIN [Suspect]
     Indication: ADENOCARCINOMA
     Dosage: 220UG CYCLIC
     Dates: start: 20121221, end: 20130131
  3. CAPECITABINE [Suspect]
     Indication: ADENOCARCINOMA
     Dosage: 1900MG TWICE PER DAY
     Dates: start: 20121221, end: 20130213

REACTIONS (2)
  - Anastomotic leak [Recovered/Resolved]
  - Small intestinal obstruction [Recovered/Resolved]
